FAERS Safety Report 25024663 (Version 2)
Quarter: 2025Q1

REPORT INFORMATION
  Report Type: Report from Study
  Country: CA (occurrence: CA)
  Receive Date: 20250228
  Receipt Date: 20250305
  Transmission Date: 20250408
  Serious: Yes (Death, Life-Threatening, Hospitalization, Other)
  Sender: REGENERON
  Company Number: CA-ULTRAGENYX PHARMACEUTICAL INC.-CA-UGX-25-00387

PATIENT
  Sex: Female

DRUGS (1)
  1. EVINACUMAB [Suspect]
     Active Substance: EVINACUMAB
     Indication: Type IIa hyperlipidaemia
     Route: 042
     Dates: start: 20241029

REACTIONS (3)
  - Death [Fatal]
  - Endotracheal intubation [Unknown]
  - Hospitalisation [Unknown]

NARRATIVE: CASE EVENT DATE: 20250224
